FAERS Safety Report 8358508-2 (Version None)
Quarter: 2012Q2

REPORT INFORMATION
  Report Type: 
  Country: None (occurrence: None)
  Receive Date: 20120514
  Receipt Date: 20120418
  Transmission Date: 20120825
  Serious: Yes (Death, Hospitalization, Other)
  Sender: FDA-Public Use
  Company Number: DE-ACTELION-A-US2010-33556

PATIENT

DRUGS (12)
  1. BICALUTAMIDE [Concomitant]
  2. INSULIN [Concomitant]
  3. MARCUMAR [Concomitant]
  4. EUTHYROX [Concomitant]
  5. ACTRAPHANE [Concomitant]
  6. SILDENAFIL [Concomitant]
  7. TORSEMIDE [Concomitant]
  8. OXYGEN [Concomitant]
  9. SIMVASTATIN [Concomitant]
  10. DULCOLAX [Concomitant]
  11. TRACLEER [Concomitant]
     Indication: PULMONARY ARTERIAL HYPERTENSION
  12. VENTAVIS [Suspect]
     Indication: PULMONARY ARTERIAL HYPERTENSION
     Dosage: 5 UG, 6 X DAY
     Route: 055
     Dates: start: 20081105

REACTIONS (13)
  - PULMONARY ARTERIAL HYPERTENSION [None]
  - DYSPNOEA [None]
  - SHOCK HAEMORRHAGIC [None]
  - RESPIRATORY FAILURE [None]
  - CARDIAC FAILURE [None]
  - HAEMATEMESIS [None]
  - HYPERVENTILATION [None]
  - CARDIOVASCULAR INSUFFICIENCY [None]
  - ANAEMIA [None]
  - GASTROINTESTINAL HAEMORRHAGE [None]
  - PACKED RED BLOOD CELL TRANSFUSION [None]
  - EPISTAXIS [None]
  - BRADYCARDIA [None]
